FAERS Safety Report 4722871-1 (Version None)
Quarter: 2005Q3

REPORT INFORMATION
  Report Type: 
  Country: None (occurrence: None)
  Receive Date: 20050722
  Receipt Date: 20050715
  Transmission Date: 20060218
  Serious: Yes (Other)
  Sender: FDA-Public Use
  Company Number: PHBS2005IT10255

PATIENT
  Age: 68 Year
  Sex: Female

DRUGS (5)
  1. ZOMETA [Suspect]
     Indication: METASTASES TO BONE
     Dosage: 4 MG, TIW
     Route: 042
     Dates: start: 20041001, end: 20050701
  2. TAXOL [Concomitant]
     Route: 065
     Dates: start: 20050401
  3. ROVAMYCIN [Concomitant]
     Route: 065
  4. FLUOROURACIL + CYCLOPHOSPHAMIDE [Concomitant]
     Dosage: 6 CYCLES OF FAC
     Route: 065
     Dates: start: 20041001
  5. DOXORUBICIN [Concomitant]
     Dosage: 6 CYCLES OF FAC
     Route: 065
     Dates: start: 20041001

REACTIONS (7)
  - ASEPTIC NECROSIS BONE [None]
  - BONE PAIN [None]
  - DENTAL OPERATION [None]
  - MALIGNANT NEOPLASM PROGRESSION [None]
  - PURULENT DISCHARGE [None]
  - SWELLING [None]
  - TOOTH LOSS [None]
